FAERS Safety Report 15604388 (Version 2)
Quarter: 2018Q4

REPORT INFORMATION
  Report Type: Spontaneous
  Country: US (occurrence: US)
  Receive Date: 20181110
  Receipt Date: 20181116
  Transmission Date: 20190205
  Serious: No
  Sender: FDA-Public Use
  Company Number: US-TEVA-2018-US-969476

PATIENT
  Sex: Female

DRUGS (1)
  1. FLUDROCORTISONE ACETATE. [Suspect]
     Active Substance: FLUDROCORTISONE ACETATE
     Indication: POSTURAL ORTHOSTATIC TACHYCARDIA SYNDROME
     Dates: start: 1998

REACTIONS (5)
  - Thinking abnormal [Unknown]
  - Wrong technique in product usage process [Unknown]
  - Dizziness [Unknown]
  - Body temperature decreased [Unknown]
  - Pollakiuria [Unknown]

NARRATIVE: CASE EVENT DATE: 1998
